FAERS Safety Report 5448452-2 (Version None)
Quarter: 2007Q3

REPORT INFORMATION
  Report Type: 
  Country: None (occurrence: None)
  Receive Date: 20070911
  Receipt Date: 20070828
  Transmission Date: 20080115
  Serious: Yes (Other)
  Sender: FDA-Public Use
  Company Number: US-ELI_LILLY_AND_COMPANY-US200708006214

PATIENT
  Age: 58 Year
  Sex: Female

DRUGS (2)
  1. EVISTA [Suspect]
     Indication: PROPHYLAXIS
     Dosage: 60 MG, UNK
     Route: 048
  2. IMITREX [Concomitant]
     Indication: MIGRAINE
     Dosage: UNK, AS NEEDED

REACTIONS (5)
  - BONE DENSITY DECREASED [None]
  - FATIGUE [None]
  - MENISCUS LESION [None]
  - TOOTH EROSION [None]
  - TOOTH INFECTION [None]
